FAERS Safety Report 8617427-4 (Version None)
Quarter: 2012Q3

REPORT INFORMATION
  Report Type: 
  Country: None (occurrence: None)
  Receive Date: 20120823
  Receipt Date: 20120810
  Transmission Date: 20120928
  Serious: No
  Sender: FDA-Public Use
  Company Number: US-009507513-1208USA005745

PATIENT

DRUGS (5)
  1. PEG-INTRON [Suspect]
     Dosage: 96 MICROGRAM, QW
     Route: 058
  2. VICTRELIS [Suspect]
  3. CELEXA [Concomitant]
  4. RIBAVIRIN [Suspect]
     Dosage: PAK 800/DAY
  5. MILK THISTLE [Concomitant]

REACTIONS (4)
  - ERYTHEMA [None]
  - INJECTION SITE PRURITUS [None]
  - PRURITUS [None]
  - INJECTION SITE ERYTHEMA [None]
